FAERS Safety Report 10232823 (Version 1)
Quarter: 2014Q2

REPORT INFORMATION
  Report Type: Spontaneous
  Country: US (occurrence: None)
  Receive Date: 20140610
  Receipt Date: 20140610
  Transmission Date: 20141212
  Serious: Yes (Other)
  Sender: FDA-Public Use
  Company Number: 2390196

PATIENT
  Age: 66 Year
  Sex: Male

DRUGS (2)
  1. MILRINONE LACTATE [Suspect]
     Indication: HYPOTENSION
     Route: 041
     Dates: start: 20140511
  2. MILRINONE LACTATE [Suspect]
     Indication: CARDIAC FAILURE
     Route: 041
     Dates: start: 20140511

REACTIONS (5)
  - Dizziness [None]
  - Incorrect drug administration rate [None]
  - Ventricular tachycardia [None]
  - Device malfunction [None]
  - Overdose [None]
